FAERS Safety Report 8500891 (Version 2)
Quarter: 2012Q4

REPORT INFORMATION
  Report Type: Spontaneous
  Country: US (occurrence: None)
  Receive Date: 20120329
  Receipt Date: 20120814
  Transmission Date: 20130627
  Serious: Yes (Life-Threatening)
  Sender: FDA-Public Use
  Company Number: 2012S1000350

PATIENT
  Sex: Male

DRUGS (1)
  1. LIVALO [Suspect]
     Dosage: PO
     Route: 048

REACTIONS (1)
  - MYOCARDIAL INFARCTION [None]
